FAERS Safety Report 5564870-6 (Version None)
Quarter: 2007Q4

REPORT INFORMATION
  Report Type: 
  Country: None (occurrence: None)
  Receive Date: 20071214
  Receipt Date: 20071214
  Transmission Date: 20080405
  Serious: Yes (Life-Threatening, Other)
  Sender: FDA-Public Use
  Company Number: None

PATIENT
  Age: 80 Year
  Sex: Male

DRUGS (2)
  1. VANCOMYCIN [Suspect]
     Indication: ANTIBIOTIC PROPHYLAXIS
     Dosage: ONE TIME IV DRIP
     Route: 041
  2. VANCOMYCIN [Suspect]
     Indication: CARDIAC PACEMAKER INSERTION
     Dosage: ONE TIME IV DRIP
     Route: 041

REACTIONS (8)
  - ADVERSE DRUG REACTION [None]
  - CARDIO-RESPIRATORY ARREST [None]
  - FEELING HOT [None]
  - FLUSHING [None]
  - HYPOTENSION [None]
  - INFUSION RELATED REACTION [None]
  - PULSE ABSENT [None]
  - UNRESPONSIVE TO STIMULI [None]
